FAERS Safety Report 15808984 (Version 2)
Quarter: 2019Q1

REPORT INFORMATION
  Report Type: Spontaneous
  Country: JP (occurrence: JP)
  Receive Date: 20190110
  Receipt Date: 20190125
  Transmission Date: 20190417
  Serious: Yes (Hospitalization)
  Sender: FDA-Public Use
  Company Number: PHJP2019JP000500

PATIENT
  Age: 65 Year
  Sex: Female

DRUGS (2)
  1. COLCHICINE. [Concomitant]
     Active Substance: COLCHICINE
     Indication: PRODUCT USED FOR UNKNOWN INDICATION
     Dosage: 0.5 MG, UNK
     Route: 048
     Dates: end: 20190122
  2. NEORAL [Suspect]
     Active Substance: CYCLOSPORINE
     Indication: BEHCET^S SYNDROME
     Dosage: 75 MG, UNK
     Route: 048
     Dates: end: 20190122

REACTIONS (3)
  - Colon cancer [Not Recovered/Not Resolved]
  - Abdominal pain lower [Unknown]
  - Product use in unapproved indication [Unknown]

NARRATIVE: CASE EVENT DATE: 201809
